FAERS Safety Report 9402170 (Version 1)
Quarter: 2013Q3

REPORT INFORMATION
  Report Type: Report from Study
  Country: PH (occurrence: PH)
  Receive Date: 20130716
  Receipt Date: 20130716
  Transmission Date: 20140515
  Serious: Yes (Death, Other)
  Sender: FDA-Public Use
  Company Number: PHHY2013PH075146

PATIENT
  Age: 54 Year
  Sex: Male

DRUGS (2)
  1. GLIVEC [Suspect]
     Dosage: 400 MG, UNK
     Route: 048
     Dates: start: 20120524, end: 20120924
  2. GLIVEC [Suspect]
     Dosage: 300 MG, UNK
     Route: 048
     Dates: start: 20120924, end: 20130601

REACTIONS (2)
  - Death [Fatal]
  - Cerebrovascular accident [Unknown]
